FAERS Safety Report 25877515 (Version 1)
Quarter: 2025Q4

REPORT INFORMATION
  Report Type: Spontaneous
  Country: CO (occurrence: CO)
  Receive Date: 20251003
  Receipt Date: 20251003
  Transmission Date: 20260118
  Serious: Yes (Other)
  Sender: PFIZER
  Company Number: CO-PFIZER INC-202500195987

PATIENT
  Age: 64 Year
  Sex: Female

DRUGS (1)
  1. XELJANZ XR [Suspect]
     Active Substance: TOFACITINIB CITRATE
     Indication: Spondyloarthropathy
     Dosage: 11 MG, DAILY
     Dates: start: 20250601, end: 20250901

REACTIONS (4)
  - Leukopenia [Not Recovered/Not Resolved]
  - Thrombocytopenia [Not Recovered/Not Resolved]
  - Lymphopenia [Not Recovered/Not Resolved]
  - Nail psoriasis [Not Recovered/Not Resolved]

NARRATIVE: CASE EVENT DATE: 20250101
